FAERS Safety Report 9594298 (Version 2)
Quarter: 2013Q4

REPORT INFORMATION
  Report Type: Spontaneous
  Country: US (occurrence: US)
  Receive Date: 20131004
  Receipt Date: 20131004
  Transmission Date: 20140711
  Serious: No
  Sender: FDA-Public Use
  Company Number: US-PURDUE-USA-2012-0089939

PATIENT
  Sex: Female

DRUGS (3)
  1. BUTRANS [Suspect]
     Indication: SCIATICA
     Dosage: 10 MCG, UNK
     Route: 062
     Dates: start: 20120616, end: 20120630
  2. NEURONTIN [Concomitant]
     Indication: NEUROPATHY PERIPHERAL
     Dosage: 100 MG, TID
     Dates: start: 20120616
  3. MEDROL                             /00049601/ [Concomitant]
     Indication: INFLAMMATION
     Dosage: UNK
     Dates: start: 20120616, end: 20120621

REACTIONS (4)
  - Drug effect increased [Recovered/Resolved]
  - Photophobia [Recovered/Resolved]
  - Nausea [Recovered/Resolved]
  - Dizziness [Recovered/Resolved]
